FAERS Safety Report 5874916-3 (Version None)
Quarter: 2008Q3

REPORT INFORMATION
  Report Type: 
  Country: None (occurrence: None)
  Receive Date: 20080904
  Receipt Date: 20080825
  Transmission Date: 20090109
  Serious: Yes (Other)
  Sender: FDA-Public Use
  Company Number: GXKR2008DE08056

PATIENT
  Sex: Female

DRUGS (2)
  1. RAMIPRIL [Suspect]
     Dosage: ORAL
     Route: 048
  2. METOPROLOL SUCCINATE [Concomitant]

REACTIONS (1)
  - BRONCHOSPASM [None]
